FAERS Safety Report 8423503 (Version 3)
Quarter: 2013Q1

REPORT INFORMATION
  Report Type: Spontaneous
  Country: MX (occurrence: MX)
  Receive Date: 20120223
  Receipt Date: 20130219
  Transmission Date: 20140127
  Serious: Yes (Other)
  Sender: FDA-Public Use
  Company Number: PHHY2012MX014378

PATIENT
  Sex: Male

DRUGS (2)
  1. ONBREZ [Suspect]
     Indication: CHRONIC OBSTRUCTIVE PULMONARY DISEASE
     Dosage: 300 UG, QD
  2. SPIRIVA [Concomitant]
     Indication: LUNG DISORDER

REACTIONS (5)
  - Renal failure chronic [Not Recovered/Not Resolved]
  - Hypertension [Not Recovered/Not Resolved]
  - Tachycardia [Recovered/Resolved]
  - Headache [Recovered/Resolved]
  - Diarrhoea [Recovered/Resolved]
